FAERS Safety Report 13197575 (Version 8)
Quarter: 2018Q4

REPORT INFORMATION
  Report Type: Spontaneous
  Country: US (occurrence: US)
  Receive Date: 20170208
  Receipt Date: 20181120
  Transmission Date: 20190204
  Serious: Yes (Disabling, Other)
  Sender: FDA-Public Use
  Company Number: US-PFIZER INC-2017056063

PATIENT
  Age: 67 Year
  Sex: Female

DRUGS (15)
  1. DILANTIN [Suspect]
     Active Substance: PHENYTOIN
     Dosage: 5 DF, 1X/DAY, AT BEDTIME
     Dates: start: 20151215
  2. DILANTIN [Suspect]
     Active Substance: PHENYTOIN
     Dosage: 5 DF, QAM
     Route: 048
     Dates: start: 20170101
  3. DEPAKOTE [Concomitant]
     Active Substance: DIVALPROEX SODIUM
     Indication: SEIZURE
     Dosage: UNK
     Route: 048
     Dates: start: 20170101
  4. LEVOTHYROXINE. [Concomitant]
     Active Substance: LEVOTHYROXINE
     Dosage: 175 UG (MCG), UNK
  5. DILANTIN [Suspect]
     Active Substance: PHENYTOIN
     Indication: SEIZURE
     Dosage: 500 MG, DAILY (100 MG 5 EXTENDED RELEASE CAPSULES AT BED TIME)
     Route: 048
     Dates: start: 20080528
  6. DILANTIN [Suspect]
     Active Substance: PHENYTOIN
     Dosage: 800 MG, UNK
     Dates: start: 20140715
  7. LEVOTHYROXINE. [Concomitant]
     Active Substance: LEVOTHYROXINE
     Dosage: 25 UG (MCG), UNK
  8. DILANTIN [Suspect]
     Active Substance: PHENYTOIN
     Indication: SEIZURE
     Dosage: 500 MG, DAILY (100 MG 5 TABLETS)
     Route: 048
     Dates: start: 20140624
  9. DILANTIN [Suspect]
     Active Substance: PHENYTOIN
     Dosage: UNK
     Dates: start: 20150128
  10. DILANTIN [Suspect]
     Active Substance: PHENYTOIN
     Dosage: UNK
     Route: 048
     Dates: start: 2009
  11. DILANTIN [Suspect]
     Active Substance: PHENYTOIN
     Dosage: UNK
     Route: 048
     Dates: start: 2009
  12. SYNTHROID [Concomitant]
     Active Substance: LEVOTHYROXINE SODIUM
     Indication: HYPOTHYROIDISM
     Dosage: 25 UG (MCG), UNK
  13. LEVOTHYROXINE. [Concomitant]
     Active Substance: LEVOTHYROXINE
     Indication: HYPOTHYROIDISM
     Dosage: 150 UG (MCG), UNK
  14. DILANTIN [Suspect]
     Active Substance: PHENYTOIN
     Dosage: 5 DF, DAILY
     Dates: start: 20161112
  15. DILANTIN [Suspect]
     Active Substance: PHENYTOIN
     Dosage: 3 DF, QHS
     Route: 048
     Dates: start: 20170101

REACTIONS (2)
  - Cerebellar atrophy [Unknown]
  - Neuropathy peripheral [Unknown]

NARRATIVE: CASE EVENT DATE: 20140402
